FAERS Safety Report 7571371-2 (Version None)
Quarter: 2011Q2

REPORT INFORMATION
  Report Type: 
  Country: None (occurrence: None)
  Receive Date: 20110624
  Receipt Date: 20110616
  Transmission Date: 20111010
  Serious: Yes (Other)
  Sender: FDA-Public Use
  Company Number: B0728431A

PATIENT
  Age: 80 Year
  Sex: Female

DRUGS (5)
  1. NITRODERM [Concomitant]
     Dosage: 3MG PER DAY
     Route: 062
     Dates: start: 20081113
  2. PAROXETINE HCL [Suspect]
     Indication: PRODUCT USED FOR UNKNOWN INDICATION
     Dosage: 20MG PER DAY
     Route: 048
     Dates: start: 20090629
  3. ASPIRIN [Suspect]
     Indication: PRODUCT USED FOR UNKNOWN INDICATION
     Dosage: 100MG PER DAY
     Route: 048
     Dates: start: 20081113
  4. AMOXICILLIN [Suspect]
     Indication: PHARYNGITIS
     Dosage: 1G TWICE PER DAY
     Route: 048
     Dates: start: 20110418, end: 20110424
  5. OMEPRAZOLE [Suspect]
     Indication: PRODUCT USED FOR UNKNOWN INDICATION
     Dosage: 20MG PER DAY
     Route: 048
     Dates: start: 20081201

REACTIONS (2)
  - HEPATITIS ACUTE [None]
  - DRUG INTERACTION [None]
